FAERS Safety Report 5485484-2 (Version None)
Quarter: 2007Q4

REPORT INFORMATION
  Report Type: 
  Country: None (occurrence: None)
  Receive Date: 20071011
  Receipt Date: 20071002
  Transmission Date: 20080405
  Serious: Yes (Hospitalization)
  Sender: FDA-Public Use
  Company Number: 2007-04478

PATIENT
  Age: 73 Year
  Sex: Male

DRUGS (3)
  1. FIORINAL [Suspect]
     Indication: ANTICOAGULANT THERAPY
     Dosage: ORAL
     Route: 048
  2. FLUINDIONE (FLUINDIONE) [Suspect]
     Indication: ANTICOAGULANT THERAPY
  3. AMIODARONE HCL [Concomitant]

REACTIONS (2)
  - GASTRIC DISORDER [None]
  - HAEMATOMA [None]
